FAERS Safety Report 12794913 (Version 1)
Quarter: 2016Q3

REPORT INFORMATION
  Report Type: Spontaneous
  Country: US (occurrence: US)
  Receive Date: 20160929
  Receipt Date: 20160929
  Transmission Date: 20161109
  Serious: No
  Sender: FDA-Public Use
  Company Number: US-BAUSCH-BL-2016-015165

PATIENT
  Age: 77 Year
  Sex: Male
  Weight: 104.42 kg

DRUGS (1)
  1. JUBLIA [Suspect]
     Active Substance: EFINACONAZOLE
     Indication: ONYCHOMYCOSIS
     Dosage: ONE DROP ON TOP OF THE INFECTED NAIL
     Route: 061

REACTIONS (3)
  - Chemical injury [Not Recovered/Not Resolved]
  - Wound secretion [Recovered/Resolved]
  - Dry skin [Recovered/Resolved]

NARRATIVE: CASE EVENT DATE: 201606
